FAERS Safety Report 5321505-5 (Version None)
Quarter: 2007Q1

REPORT INFORMATION
  Report Type: 
  Country: None (occurrence: None)
  Receive Date: 20070220
  Receipt Date: 20061121
  Transmission Date: 20070707
  Serious: No
  Sender: FDA-Public Use
  Company Number: TPA2006A02104

PATIENT
  Age: 59 Year
  Sex: Female
  Weight: 48.0813 kg

DRUGS (6)
  1. ROZEREM [Suspect]
     Indication: INSOMNIA
     Dosage: 8 MG, QHS, AS REQUIRED, PER ORAL
     Route: 048
     Dates: start: 20060901
  2. SYNTHROID [Concomitant]
  3. FOSAMAX [Concomitant]
  4. VITAMIN D [Concomitant]
  5. CALCIUM (CALCIUM) [Concomitant]
  6. TRICOR [Concomitant]

REACTIONS (2)
  - RHINORRHOEA [None]
  - SNEEZING [None]
